FAERS Safety Report 4909419-3 (Version None)
Quarter: 2006Q1

REPORT INFORMATION
  Report Type: 
  Country: None (occurrence: None)
  Receive Date: 20060210
  Receipt Date: 20060210
  Transmission Date: 20060701
  Serious: Yes (Hospitalization)
  Sender: FDA-Public Use
  Company Number: None

PATIENT
  Sex: Male
  Weight: 60 kg

DRUGS (2)
  1. OLANZAPINE [Suspect]
     Indication: DEMENTIA
     Dosage: 10MG  BID  PO
     Route: 048
     Dates: end: 20051201
  2. CITALOPRAM   40MG [Suspect]
     Indication: DEPRESSION
     Dosage: 40MG  DAILY  PO
     Route: 048
     Dates: end: 20051201

REACTIONS (6)
  - ABDOMINAL PAIN [None]
  - ALANINE AMINOTRANSFERASE INCREASED [None]
  - ASPARTATE AMINOTRANSFERASE INCREASED [None]
  - BLOOD ALKALINE PHOSPHATASE INCREASED [None]
  - HEPATIC FUNCTION ABNORMAL [None]
  - NAUSEA [None]
